FAERS Safety Report 11913678 (Version 1)
Quarter: 2016Q1

REPORT INFORMATION
  Report Type: Spontaneous
  Country: US (occurrence: US)
  Receive Date: 20160113
  Receipt Date: 20160113
  Transmission Date: 20160526
  Serious: No
  Sender: FDA-Public Use
  Company Number: US-PFIZER INC-2016003749

PATIENT
  Age: 76 Year
  Sex: Female
  Weight: 71.67 kg

DRUGS (5)
  1. DILTIAZEM [Concomitant]
     Active Substance: DILTIAZEM
     Indication: BLOOD PRESSURE ABNORMAL
     Dosage: 300 MG, DAILY WITH FOOD
  2. ALPRAZOLAM. [Suspect]
     Active Substance: ALPRAZOLAM
     Dosage: 0.25 MG, AS NEEDED
  3. CRESTOR [Concomitant]
     Active Substance: ROSUVASTATIN CALCIUM
     Indication: BLOOD CHOLESTEROL ABNORMAL
     Dosage: 20 MG, AT NIGHT, TAKEN ON AN EMPTY STOMACH
  4. HYDROCHLOROTHIAZIDE. [Concomitant]
     Active Substance: HYDROCHLOROTHIAZIDE
     Indication: FLUID IMBALANCE
     Dosage: 12.5 MG, DAILY
  5. ROBITUSSIN PEAK COLD COUGH PLUS CHEST CONGESTION DM [Suspect]
     Active Substance: DEXTROMETHORPHAN HYDROBROMIDE\GUAIFENESIN
     Indication: COUGH
     Dosage: UP TO THE LINE ON THE LITTLE CUP
     Route: 048
     Dates: start: 201512

REACTIONS (4)
  - Dizziness [Recovered/Resolved]
  - Head discomfort [Recovered/Resolved]
  - Contraindicated drug administered [Unknown]
  - Product use issue [Unknown]
